FAERS Safety Report 4591668-8 (Version None)
Quarter: 2005Q1

REPORT INFORMATION
  Report Type: 
  Country: None (occurrence: None)
  Receive Date: 20050218
  Receipt Date: 20050207
  Transmission Date: 20050727
  Serious: Yes (Hospitalization)
  Sender: FDA-Public Use
  Company Number: 2005026887

PATIENT
  Age: 52 Year
  Sex: Female

DRUGS (3)
  1. SOLU-MEDROL [Suspect]
     Indication: ILL-DEFINED DISORDER
     Dosage: 20 MG, INTRAVENOUS
     Route: 042
     Dates: start: 20041008, end: 20041008
  2. DEXCHLORPHENIRAMINE MALEATE [Suspect]
     Indication: ILL-DEFINED DISORDER
     Dosage: INTRAVENOUS
     Route: 042
     Dates: start: 20041008, end: 20041008
  3. GEMTUZUMAB OZOGAMICIN (GEMTUZUMAB OZOGAMICIN) [Suspect]
     Indication: ACUTE MYELOID LEUKAEMIA
     Dosage: 4 MG, INTRAVENOUS
     Route: 042
     Dates: start: 20041008, end: 20041008

REACTIONS (5)
  - CHILLS [None]
  - CYANOSIS [None]
  - INFUSION RELATED REACTION [None]
  - PYREXIA [None]
  - TACHYCARDIA [None]
